FAERS Safety Report 10260951 (Version 1)
Quarter: 2014Q2

REPORT INFORMATION
  Report Type: Spontaneous
  Country: US (occurrence: None)
  Receive Date: 20140623
  Receipt Date: 20140623
  Transmission Date: 20141212
  Serious: Yes (Hospitalization)
  Sender: FDA-Public Use
  Company Number: US-H14001-14-00083

PATIENT
  Age: 24 Year
  Sex: Female

DRUGS (2)
  1. LITHIUM (LITHIUM) (UNKNOWN) (LITHIUM) [Suspect]
     Indication: SCHIZOAFFECTIVE DISORDER BIPOLAR TYPE
  2. CLOZAPINE (CLOZAPINE) (UNKNOWN) (CLOZAPINE) [Suspect]
     Indication: SCHIZOAFFECTIVE DISORDER BIPOLAR TYPE
     Dosage: TITRATED UP TO 100 MG, UNKNOWN

REACTIONS (3)
  - Neuroleptic malignant syndrome [None]
  - Leukocytosis [None]
  - Urinary incontinence [None]
